FAERS Safety Report 24778759 (Version 1)
Quarter: 2024Q4

REPORT INFORMATION
  Report Type: Spontaneous
  Country: GB (occurrence: GB)
  Receive Date: 20241226
  Receipt Date: 20241226
  Transmission Date: 20250115
  Serious: Yes (Hospitalization)
  Sender: INSUD PHARMA
  Company Number: None

PATIENT
  Age: 62 Year
  Sex: Female

DRUGS (13)
  1. OMEPRAZOLE [Suspect]
     Active Substance: OMEPRAZOLE
     Indication: Product used for unknown indication
     Dosage: 20MG CAPSULE - ONE CAPSULE BD
  2. MICONAZOLE [Concomitant]
     Active Substance: MICONAZOLE
     Dosage: 2 % CREAM - TWICE A DAY IN THE MORNING AND AT NIGHT FOR 7 DAYS
  3. RAMIPRIL [Concomitant]
     Active Substance: RAMIPRIL
     Dosage: 10MG CAPSULES ONE EACH DAY
  4. PROPRANOLOL [Concomitant]
     Active Substance: PROPRANOLOL HYDROCHLORIDE
     Dosage: 30 MILLIGRAM
  5. PROPRANOLOL [Concomitant]
     Active Substance: PROPRANOLOL HYDROCHLORIDE
     Dosage: 40MG TABLET - ONE TABLET TWICE A DAY- REDUCED TO 30MG BD. SUSPENDED
  6. NICOTINE [Concomitant]
     Active Substance: NICOTINE
     Dosage: NICOTINE 15 MG/DOSE INHALATOR NICOTINE 21 MG/24 HOURS PATCH
  7. FAMOTIDINE [Concomitant]
     Active Substance: FAMOTIDINE
     Dosage: UNK
  8. CETIRIZINE [Concomitant]
     Active Substance: CETIRIZINE HYDROCHLORIDE
     Dosage: 10MG TABS - 1 OM
  9. ATORVASTATIN [Concomitant]
     Active Substance: ATORVASTATIN
     Dosage: 20MG TABLETS - ONE TABLET A DAY
  10. ACETAMINOPHEN [Concomitant]
     Active Substance: ACETAMINOPHEN
     Dosage: 500 MG TABLETS - 1000MG FOUR TIMES A DAY PRN PAIN - 7 DAYS SHORT COURSE
  11. SENNAE [Concomitant]
     Dosage: 7.5 MG TABLETS - 15MG EVERY NIGHT - 7 DAYS SHORT COURSE
  12. FOLIC ACID [Concomitant]
     Active Substance: FOLIC ACID
     Dosage: 5MG TABLETS - 1 TABLET ONCE A DAY
  13. INDAPAMIDE [Concomitant]
     Active Substance: INDAPAMIDE
     Dosage: 1.5MG MODIFIED RELEASE TABLETS - ONE IN THE MORNING MAY LAST USED - SUSPENDED

REACTIONS (1)
  - Pseudogynaecomastia [Unknown]
